FAERS Safety Report 23873982 (Version 1)
Quarter: 2024Q2

REPORT INFORMATION
  Report Type: Spontaneous
  Country: BR (occurrence: BR)
  Receive Date: 20240520
  Receipt Date: 20240520
  Transmission Date: 20240715
  Serious: Yes (Hospitalization, Other)
  Sender: FDA-Public Use
  Company Number: BR-EPICPHARMA-BR-2024EPCLIT00503

PATIENT
  Age: 9 Year
  Sex: Female

DRUGS (3)
  1. CARBOPLATIN [Suspect]
     Active Substance: CARBOPLATIN
     Indication: Neuroblastoma
     Route: 065
  2. ETOPOSIDE [Suspect]
     Active Substance: ETOPOSIDE
     Indication: Neuroblastoma
     Route: 065
  3. BENZOCAINE [Concomitant]
     Active Substance: BENZOCAINE
     Indication: Anaesthesia
     Route: 061

REACTIONS (7)
  - Stomatitis [Recovered/Resolved]
  - Pancytopenia [Recovered/Resolved]
  - Dysphagia [Recovered/Resolved]
  - Malnutrition [Recovered/Resolved]
  - Quality of life decreased [Recovered/Resolved]
  - Oral pain [Recovered/Resolved]
  - Product use in unapproved indication [Unknown]
